FAERS Safety Report 22342704 (Version 2)
Quarter: 2023Q2

REPORT INFORMATION
  Report Type: Spontaneous
  Country: CN (occurrence: None)
  Receive Date: 20230519
  Receipt Date: 20230522
  Transmission Date: 20230722
  Serious: Yes (Other)
  Sender: FDA-Public Use
  Company Number: CN-ROCHE-3350982

PATIENT

DRUGS (4)
  1. TECENTRIQ [Suspect]
     Active Substance: ATEZOLIZUMAB
     Indication: HER2 positive breast cancer
     Route: 065
  2. HERCEPTIN [Suspect]
     Active Substance: TRASTUZUMAB
     Indication: HER2 positive breast cancer
     Route: 065
  3. PERJETA [Suspect]
     Active Substance: PERTUZUMAB
     Indication: HER2 positive breast cancer
     Route: 065
  4. EPIRUBICIN [Concomitant]
     Active Substance: EPIRUBICIN
     Indication: HER2 positive breast cancer

REACTIONS (16)
  - Nausea [Unknown]
  - Diarrhoea [Unknown]
  - Alopecia [Unknown]
  - Neutropenia [Unknown]
  - Infusion related reaction [Unknown]
  - Fatigue [Unknown]
  - Headache [Unknown]
  - Chills [Unknown]
  - Decreased appetite [Unknown]
  - Constipation [Unknown]
  - Pyrexia [Unknown]
  - Mucosal inflammation [Unknown]
  - Arthralgia [Unknown]
  - Dry skin [Unknown]
  - Dyspepsia [Unknown]
  - Nasopharyngitis [Unknown]
